FAERS Safety Report 15610400 (Version 1)
Quarter: 2018Q4

REPORT INFORMATION
  Report Type: Spontaneous
  Country: US (occurrence: US)
  Receive Date: 20181113
  Receipt Date: 20181113
  Transmission Date: 20190205
  Serious: No
  Sender: FDA-Public Use
  Company Number: US-ROCHE-2029838

PATIENT
  Sex: Male
  Weight: 44.04 kg

DRUGS (4)
  1. AZITHROMYCIN ANHYDROUS. [Suspect]
     Active Substance: AZITHROMYCIN ANHYDROUS
     Indication: BRONCHITIS
     Dosage: ON DAY 1
     Route: 048
     Dates: start: 20171120, end: 20171120
  2. TAMIFLU [Suspect]
     Active Substance: OSELTAMIVIR PHOSPHATE
     Indication: INFLUENZA
     Dosage: FOR 5 DAYS
     Route: 048
     Dates: start: 20171120, end: 20171120
  3. AZITHROMYCIN ANHYDROUS. [Suspect]
     Active Substance: AZITHROMYCIN ANHYDROUS
     Dosage: FOR THE NEXT 4 DAYS
     Route: 048
     Dates: start: 20171121
  4. ALBUTEROL. [Suspect]
     Active Substance: ALBUTEROL
     Indication: BRONCHITIS
     Route: 065
     Dates: start: 20171120

REACTIONS (2)
  - Ill-defined disorder [Recovered/Resolved]
  - Fear [Recovered/Resolved]
